FAERS Safety Report 7804193-5 (Version None)
Quarter: 2011Q4

REPORT INFORMATION
  Report Type: 
  Country: None (occurrence: None)
  Receive Date: 20111010
  Receipt Date: 20111006
  Transmission Date: 20120403
  Serious: Yes (Other)
  Sender: FDA-Public Use
  Company Number: JP-JNJFOC-20111000005

PATIENT
  Age: 92 Year
  Sex: Female

DRUGS (4)
  1. FENTANYL-100 [Suspect]
     Route: 062
     Dates: start: 20110303
  2. FENTANYL-100 [Suspect]
     Route: 062
  3. FENTANYL-100 [Suspect]
     Dosage: 1.5 PATCH OF 12.5 UG/HR
     Route: 062
     Dates: start: 20110701, end: 20110926
  4. FENTANYL-100 [Suspect]
     Indication: PAIN
     Dosage: 2 X 12.5 UG/HR PATCHES
     Route: 062
     Dates: start: 20010301

REACTIONS (3)
  - HALLUCINATION [None]
  - WRONG TECHNIQUE IN DRUG USAGE PROCESS [None]
  - DRUG PRESCRIBING ERROR [None]
